FAERS Safety Report 16395941 (Version 1)
Quarter: 2019Q2

REPORT INFORMATION
  Report Type: Spontaneous
  Country: MX (occurrence: MX)
  Receive Date: 20190605
  Receipt Date: 20190605
  Transmission Date: 20190711
  Serious: Yes (Other)
  Sender: FDA-Public Use
  Company Number: MX-ANIPHARMA-2019-MX-000017

PATIENT
  Age: 56 Year
  Sex: Female
  Weight: 105 kg

DRUGS (4)
  1. SELOKEN ZOK [Suspect]
     Active Substance: METOPROLOL SUCCINATE
     Dosage: 47.5 MG DAILY / 95 MG DAILY
     Route: 048
     Dates: start: 20170528
  2. CANDESARTAN CILEXETIL AND HYDROCHLOROTHIAZIDE [Suspect]
     Active Substance: CANDESARTAN CILEXETIL\HYDROCHLOROTHIAZIDE
     Indication: HYPERTENSION
     Dosage: 8 MG DAILY / 16 MG DAILY
     Route: 048
     Dates: start: 20171228
  3. RYTHMOL [Concomitant]
     Active Substance: PROPAFENONE HYDROCHLORIDE
     Dosage: 150 MG DAILY
     Route: 048
     Dates: start: 19940528
  4. ASPIRINA [Concomitant]
     Active Substance: ASPIRIN
     Dosage: DAILY
     Route: 050
     Dates: start: 20181229

REACTIONS (8)
  - Medication error [Unknown]
  - Angiopathy [Not Recovered/Not Resolved]
  - Dizziness [Not Recovered/Not Resolved]
  - Self-medication [Recovered/Resolved]
  - Vision blurred [Not Recovered/Not Resolved]
  - Epistaxis [Recovered/Resolved]
  - Headache [Not Recovered/Not Resolved]
  - Drug interaction [Unknown]

NARRATIVE: CASE EVENT DATE: 201812
